FAERS Safety Report 7383084-0 (Version None)
Quarter: 2011Q1

REPORT INFORMATION
  Report Type: 
  Country: None (occurrence: None)
  Receive Date: 20110330
  Receipt Date: 20110325
  Transmission Date: 20110831
  Serious: No
  Sender: FDA-Public Use
  Company Number: US-PFIZER INC-2011067203

PATIENT
  Age: 44 Year
  Sex: Male

DRUGS (2)
  1. VIAGRA [Suspect]
     Indication: SEXUAL DYSFUNCTION
     Dosage: UNK
  2. ZOLOFT [Suspect]
     Dosage: 50 MG, 1X/DAY

REACTIONS (2)
  - SEXUAL DYSFUNCTION [None]
  - DRUG INEFFECTIVE [None]
